FAERS Safety Report 10250100 (Version 1)
Quarter: 2014Q2

REPORT INFORMATION
  Report Type: Spontaneous
  Country: US (occurrence: US)
  Receive Date: 20140620
  Receipt Date: 20140620
  Transmission Date: 20141212
  Serious: No
  Sender: FDA-Public Use
  Company Number: US-BRISTOL-MYERS SQUIBB COMPANY-20666053

PATIENT
  Age: 87 Year
  Sex: Male

DRUGS (5)
  1. ELIQUIS [Suspect]
     Dates: start: 201401
  2. PROSCAR [Concomitant]
  3. ASA [Concomitant]
  4. ZOCOR [Concomitant]
  5. LISINOPRIL [Concomitant]

REACTIONS (2)
  - Rash [Not Recovered/Not Resolved]
  - Dizziness [Recovered/Resolved]
